FAERS Safety Report 4503051-1 (Version None)
Quarter: 2004Q4

REPORT INFORMATION
  Report Type: 
  Country: None (occurrence: None)
  Receive Date: 20041116
  Receipt Date: 20041116
  Transmission Date: 20050328
  Serious: Yes (Disabling)
  Sender: FDA-Public Use
  Company Number: None

PATIENT
  Sex: Female
  Weight: 56.6996 kg

DRUGS (1)
  1. CELEBREX [Suspect]
     Indication: ARTHROPATHY

REACTIONS (2)
  - THROMBOSIS [None]
  - VENOUS OCCLUSION [None]
